FAERS Safety Report 4452073-8 (Version None)
Quarter: 2004Q3

REPORT INFORMATION
  Report Type: 
  Country: None (occurrence: None)
  Receive Date: 20040915
  Receipt Date: 20040915
  Transmission Date: 20050211
  Serious: Yes (Other)
  Sender: FDA-Public Use
  Company Number: None

PATIENT
  Age: 60 Year
  Sex: Male
  Weight: 90.7194 kg

DRUGS (2)
  1. LEXAPRO [Suspect]
     Indication: ANTIDEPRESSANT THERAPY
     Dosage: 2 AT BEDTIME
     Dates: start: 20030601
  2. LEXAPRO [Suspect]
     Indication: OBSESSIVE-COMPULSIVE DISORDER
     Dosage: 2 AT BEDTIME
     Dates: start: 20030601

REACTIONS (8)
  - AGGRESSION [None]
  - CHILD ABUSE [None]
  - EUPHORIC MOOD [None]
  - FEELING ABNORMAL [None]
  - HALLUCINATIONS, MIXED [None]
  - MANIA [None]
  - SEXUAL ABUSE [None]
  - SEXUAL DYSFUNCTION [None]
